FAERS Safety Report 11705567 (Version 1)
Quarter: 2015Q4

REPORT INFORMATION
  Report Type: Report from Study
  Country: US (occurrence: US)
  Receive Date: 20151106
  Receipt Date: 20151106
  Transmission Date: 20160304
  Serious: Yes (Hospitalization)
  Sender: FDA-Public Use
  Company Number: US-JNJFOC-20151104161

PATIENT
  Sex: Male

DRUGS (12)
  1. ATIVAN [Concomitant]
     Active Substance: LORAZEPAM
  2. HYDROCHLOROTHIAZIDE. [Concomitant]
     Active Substance: HYDROCHLOROTHIAZIDE
  3. ALBUTEROL SULFATE. [Concomitant]
     Active Substance: ALBUTEROL SULFATE
  4. GABAPENTIN. [Concomitant]
     Active Substance: GABAPENTIN
  5. GLYCOLAX [Concomitant]
     Active Substance: POLYETHYLENE GLYCOL 3350
  6. OMEPRAZOLE. [Concomitant]
     Active Substance: OMEPRAZOLE
  7. IPRATROPIUM BROMIDE. [Concomitant]
     Active Substance: IPRATROPIUM BROMIDE
  8. MICARDIS [Concomitant]
     Active Substance: TELMISARTAN
  9. IMBRUVICA [Suspect]
     Active Substance: IBRUTINIB
     Indication: WALDENSTROM^S MACROGLOBULINAEMIA
     Route: 048
     Dates: start: 201509, end: 2015
  10. METOPROLOL [Concomitant]
     Active Substance: METOPROLOL
  11. LEVOTHYROXINE. [Concomitant]
     Active Substance: LEVOTHYROXINE
  12. REFRESH TEARS [Concomitant]
     Active Substance: CARBOXYMETHYLCELLULOSE SODIUM

REACTIONS (4)
  - Kidney infection [Recovered/Resolved]
  - Blood immunoglobulin M decreased [Unknown]
  - Hypotension [Unknown]
  - Fall [Unknown]

NARRATIVE: CASE EVENT DATE: 2015
